FAERS Safety Report 4435534-7 (Version None)
Quarter: 2004Q3

REPORT INFORMATION
  Report Type: 
  Country: None (occurrence: None)
  Receive Date: 20040726
  Receipt Date: 20040430
  Transmission Date: 20050211
  Serious: No
  Sender: FDA-Public Use
  Company Number: USA040566432

PATIENT
  Age: 82 Year
  Sex: Female
  Weight: 63 kg

DRUGS (1)
  1. FORTEO [Suspect]
     Indication: CERVICAL VERTEBRAL FRACTURE
     Dosage: 20 UG
     Dates: start: 20030101

REACTIONS (3)
  - BREAST PAIN [None]
  - HERPES ZOSTER [None]
  - WEIGHT DECREASED [None]
